FAERS Safety Report 23744466 (Version 1)
Quarter: 2024Q2

REPORT INFORMATION
  Report Type: Spontaneous
  Country: US (occurrence: US)
  Receive Date: 20240415
  Receipt Date: 20240415
  Transmission Date: 20240715
  Serious: No
  Sender: FDA-Public Use
  Company Number: US-SANDOZ-SDZ2024US038907

PATIENT
  Sex: Female
  Weight: 51.701 kg

DRUGS (5)
  1. DAYTRANA [Suspect]
     Active Substance: METHYLPHENIDATE
     Indication: Attention deficit hyperactivity disorder
     Dosage: 10 MG
     Route: 065
     Dates: start: 2002
  2. RITALIN LA [Suspect]
     Active Substance: METHYLPHENIDATE HYDROCHLORIDE
     Indication: Attention deficit hyperactivity disorder
     Dosage: UNK
     Route: 065
  3. SEROTONIN [Suspect]
     Active Substance: SEROTONIN
     Indication: Attention deficit hyperactivity disorder
     Dosage: UNK
     Route: 065
  4. SAPROPTERIN [Concomitant]
     Active Substance: SAPROPTERIN
     Indication: Hyperkeratosis
     Dosage: UNK
     Route: 065
  5. SAPROPTERIN [Concomitant]
     Active Substance: SAPROPTERIN
     Indication: Dopa-responsive dystonia

REACTIONS (1)
  - Drug intolerance [Unknown]
